FAERS Safety Report 25307441 (Version 1)
Quarter: 2025Q2

REPORT INFORMATION
  Report Type: Spontaneous
  Country: GB (occurrence: GB)
  Receive Date: 20250513
  Receipt Date: 20250513
  Transmission Date: 20250717
  Serious: Yes (Hospitalization, Other)
  Sender: Norvium Bioscience
  Company Number: GB-Norvium Bioscience LLC-080135

PATIENT
  Age: 5 Decade
  Sex: Male
  Weight: 160 kg

DRUGS (10)
  1. PREGABALIN [Suspect]
     Active Substance: PREGABALIN
     Indication: Product used for unknown indication
  2. MIRTAZAPINE [Suspect]
     Active Substance: MIRTAZAPINE
     Indication: Depression
  3. DIAZEPAM [Suspect]
     Active Substance: DIAZEPAM
     Indication: Product used for unknown indication
  4. FENTANYL [Suspect]
     Active Substance: FENTANYL
     Indication: Product used for unknown indication
  5. MORPHINE [Suspect]
     Active Substance: MORPHINE
     Indication: Product used for unknown indication
  6. CODEINE [Suspect]
     Active Substance: CODEINE
     Indication: Product used for unknown indication
  7. BENZOYLECGONINE [Suspect]
     Active Substance: BENZOYLECGONINE
     Indication: Product used for unknown indication
  8. NORDAZEPAM [Suspect]
     Active Substance: NORDAZEPAM
     Indication: Product used for unknown indication
  9. METHADONE [Suspect]
     Active Substance: METHADONE HYDROCHLORIDE
     Indication: Depression
  10. LAMOTRIGINE [Concomitant]
     Active Substance: LAMOTRIGINE
     Indication: Depression

REACTIONS (6)
  - Overdose [Unknown]
  - Respiratory failure [Recovered/Resolved]
  - Respiratory acidosis [Recovered/Resolved]
  - Pericardial effusion [Recovered/Resolved]
  - Drug abuse [Unknown]
  - Ascites [Recovered/Resolved]
